FAERS Safety Report 9387826 (Version 2)
Quarter: 2013Q3

REPORT INFORMATION
  Report Type: Spontaneous
  Country: US (occurrence: ES)
  Receive Date: 20130701
  Receipt Date: 20130712
  Transmission Date: 20140515
  Serious: Yes (Other)
  Sender: FDA-Public Use
  Company Number: 2013P1006832

PATIENT
  Age: 26 Year
  Sex: Male
  Weight: 136.08 kg

DRUGS (1)
  1. MYORISAN [Suspect]
     Indication: ACNE CYSTIC
     Route: 048
     Dates: start: 20130214, end: 20130417

REACTIONS (1)
  - Hepatic steatosis [None]
